FAERS Safety Report 4698717-7 (Version None)
Quarter: 2005Q2

REPORT INFORMATION
  Report Type: 
  Country: None (occurrence: None)
  Receive Date: 20050622
  Receipt Date: 20050610
  Transmission Date: 20051028
  Serious: Yes (Hospitalization)
  Sender: FDA-Public Use
  Company Number: 215230

PATIENT
  Age: 63 Year
  Sex: Male
  Weight: 59 kg

DRUGS (15)
  1. AVASTIN [Suspect]
     Indication: PANCREATIC CARCINOMA METASTATIC
     Dosage: 5 MG/KG, Q2W, INTRAVENOUS
     Route: 042
     Dates: start: 20050112
  2. TEMOZOLOMIDE (TEMOZOLOMIDE) [Suspect]
     Indication: PANCREATIC CARCINOMA METASTATIC
     Dosage: 150 MG/M2, QD, ORAL
     Route: 048
     Dates: start: 20050112
  3. TYLENOL [Concomitant]
  4. COLACE (DOCUSATE SODIUM) [Concomitant]
  5. LACTULOSE [Concomitant]
  6. MILK OF MAGNESIA (MILK OF MAGNESIA) [Concomitant]
  7. REGLAN [Concomitant]
  8. OXYCONTIN [Concomitant]
  9. OXYCODONE (OXYCODONE) [Concomitant]
  10. SENNA (SENNA) [Concomitant]
  11. MULTIVITAMIN (MULTIVITAMINS NOS) [Concomitant]
  12. ZYPREXA [Concomitant]
  13. NEXIUM [Concomitant]
  14. GLYBURIDE (GYBURIDE) [Concomitant]
  15. RITALIN [Concomitant]

REACTIONS (27)
  - ACTIVATED PARTIAL THROMBOPLASTIN TIME PROLONGED [None]
  - ANAEMIA OF CHRONIC DISEASE [None]
  - ASTHENIA [None]
  - BEDRIDDEN [None]
  - BLOOD ALBUMIN DECREASED [None]
  - BLOOD CALCIUM DECREASED [None]
  - BLOOD GLUCOSE DECREASED [None]
  - BLOOD PRESSURE DIASTOLIC DECREASED [None]
  - BLOOD SODIUM DECREASED [None]
  - BODY TEMPERATURE DECREASED [None]
  - CARDIAC MURMUR [None]
  - CHEST PAIN [None]
  - DEHYDRATION [None]
  - DYSPNOEA EXERTIONAL [None]
  - FATIGUE [None]
  - INTERNATIONAL NORMALISED RATIO INCREASED [None]
  - LUNG NEOPLASM [None]
  - METASTASES TO BONE [None]
  - METASTASES TO LIVER [None]
  - ORAL INTAKE REDUCED [None]
  - PAIN [None]
  - PAIN IN EXTREMITY [None]
  - PLATELET COUNT DECREASED [None]
  - PLEURAL EFFUSION [None]
  - PROTHROMBIN TIME PROLONGED [None]
  - SINUS TACHYCARDIA [None]
  - WHITE BLOOD CELL COUNT DECREASED [None]
